FAERS Safety Report 11102450 (Version 1)
Quarter: 2015Q2

REPORT INFORMATION
  Report Type: Spontaneous
  Country: US (occurrence: US)
  Receive Date: 20150511
  Receipt Date: 20150511
  Transmission Date: 20150821
  Serious: No
  Sender: FDA-Public Use
  Company Number: US-009507513-1505USA003272

PATIENT
  Age: 74 Year
  Sex: Male

DRUGS (1)
  1. TICE BCG [Suspect]
     Active Substance: BACILLUS CALMETTE-GUERIN SUBSTRAIN TICE LIVE ANTIGEN
     Indication: PROPHYLAXIS
     Dates: start: 200505, end: 200505

REACTIONS (2)
  - Bladder spasm [Recovered/Resolved]
  - Dysuria [Recovered/Resolved]
